FAERS Safety Report 13375643 (Version 1)
Quarter: 2017Q1

REPORT INFORMATION
  Report Type: Report from Study
  Country: DE (occurrence: DE)
  Receive Date: 20170328
  Receipt Date: 20170328
  Transmission Date: 20170429
  Serious: Yes (Hospitalization)
  Sender: FDA-Public Use
  Company Number: DE-ROCHE-1911196

PATIENT
  Age: 40 Year
  Sex: Male
  Weight: 39 kg

DRUGS (3)
  1. OBINUTUZUMAB [Suspect]
     Active Substance: OBINUTUZUMAB
     Indication: B-CELL LYMPHOMA
     Dosage: INFUSION STOPPED AFTER 100 MG AND INFUSION CONTINUED WITH 900 MG ON THE NEXT DAY (11-FEB-2017)?MOST
     Route: 041
     Dates: start: 20160930
  2. ALLOPURINOL. [Concomitant]
     Active Substance: ALLOPURINOL
     Dosage: FOR PROPHYLAXIS/PREMEDICATION
     Route: 065
     Dates: start: 20160929
  3. IBRUTINIB [Suspect]
     Active Substance: IBRUTINIB
     Indication: B-CELL LYMPHOMA
     Dosage: LAST DOSE PRIOR TO THE EVENT; 15/MAR/2017
     Route: 048
     Dates: start: 20160930

REACTIONS (1)
  - Stomatitis [Not Recovered/Not Resolved]

NARRATIVE: CASE EVENT DATE: 20170319
